FAERS Safety Report 6627743-3 (Version None)
Quarter: 2010Q1

REPORT INFORMATION
  Report Type: 
  Country: None (occurrence: None)
  Receive Date: 20100311
  Receipt Date: 20100303
  Transmission Date: 20100710
  Serious: Yes (Other)
  Sender: FDA-Public Use
  Company Number: PHHY2010BR01771

PATIENT
  Sex: Male
  Weight: 95 kg

DRUGS (4)
  1. TRILEPTAL [Suspect]
     Indication: EPILEPSY
     Dosage: 600 MG DAILY
     Route: 048
     Dates: end: 20070101
  2. TRILEPTAL [Suspect]
     Dosage: 900 MG DAILY
     Dates: start: 20091109
  3. GARDENAL [Suspect]
     Indication: EPILEPSY
     Dosage: 300 MG DAILY
  4. GARDENAL [Suspect]
     Dosage: 300 MG AT NIGHT

REACTIONS (4)
  - EPILEPSY [None]
  - HEPATIC ENZYME INCREASED [None]
  - PANCREATIC ENZYMES INCREASED [None]
  - TREATMENT NONCOMPLIANCE [None]
